FAERS Safety Report 5734325-4 (Version None)
Quarter: 2008Q2

REPORT INFORMATION
  Report Type: 
  Country: None (occurrence: None)
  Receive Date: 20080512
  Receipt Date: 20080502
  Transmission Date: 20081010
  Serious: Yes (Other)
  Sender: FDA-Public Use
  Company Number: US-JNJFOC-20080500737

PATIENT
  Sex: Male

DRUGS (8)
  1. REMICADE [Suspect]
     Indication: RHEUMATOID ARTHRITIS
     Dosage: START DATE: ^SEP OR OCT-2006^
     Route: 042
  2. LOPRESSOR [Concomitant]
  3. NORVASC [Concomitant]
  4. ATACAND [Concomitant]
  5. PERCOCET [Concomitant]
  6. BENADRYL [Concomitant]
     Indication: MULTIPLE ALLERGIES
  7. ULTRACET [Concomitant]
  8. NITROGLYCERIN [Concomitant]

REACTIONS (6)
  - FEELING ABNORMAL [None]
  - FEELING COLD [None]
  - HEADACHE [None]
  - RETINAL TEAR [None]
  - SQUAMOUS CELL CARCINOMA [None]
  - TREMOR [None]
